FAERS Safety Report 17695655 (Version 1)
Quarter: 2020Q2

REPORT INFORMATION
  Report Type: Spontaneous
  Country: US (occurrence: US)
  Receive Date: 20200422
  Receipt Date: 20200422
  Transmission Date: 20200714
  Serious: Yes (Other)
  Sender: FDA-Public Use
  Company Number: US-NAPPMUNDI-USA-2020-0151775

PATIENT
  Sex: Female

DRUGS (4)
  1. OXYCONTIN [Suspect]
     Active Substance: OXYCODONE HYDROCHLORIDE
     Indication: PRODUCT USED FOR UNKNOWN INDICATION
     Dosage: UNK
     Route: 048
     Dates: start: 2017, end: 20200119
  2. PERCOCET [Suspect]
     Active Substance: ACETAMINOPHEN\OXYCODONE HYDROCHLORIDE
     Indication: NECK PAIN
     Dosage: 10 MG, UNK
     Route: 065
     Dates: start: 2017, end: 20200119
  3. XANAX [Suspect]
     Active Substance: ALPRAZOLAM
     Indication: PRODUCT USED FOR UNKNOWN INDICATION
     Dosage: UNK
     Route: 065
     Dates: start: 2017, end: 20200119
  4. PERCOCET [Suspect]
     Active Substance: ACETAMINOPHEN\OXYCODONE HYDROCHLORIDE
     Indication: BACK PAIN

REACTIONS (12)
  - Drug abuse [Recovered/Resolved]
  - Hallucination [Unknown]
  - Mental impairment [Not Recovered/Not Resolved]
  - Disturbance in attention [Unknown]
  - Drug tolerance [Recovered/Resolved]
  - Drug withdrawal syndrome [Unknown]
  - Drug dependence [Not Recovered/Not Resolved]
  - Vomiting [Unknown]
  - General physical health deterioration [Not Recovered/Not Resolved]
  - Suicide attempt [Not Recovered/Not Resolved]
  - Dysphemia [Not Recovered/Not Resolved]
  - Muscle spasms [Unknown]

NARRATIVE: CASE EVENT DATE: 2017
